FAERS Safety Report 4836705-8 (Version None)
Quarter: 2005Q4

REPORT INFORMATION
  Report Type: 
  Country: None (occurrence: None)
  Receive Date: 20051121
  Receipt Date: 20051114
  Transmission Date: 20060501
  Serious: Yes (Other)
  Sender: FDA-Public Use
  Company Number: 2005-11-0669

PATIENT
  Age: 62 Year
  Sex: Male

DRUGS (1)
  1. NASONEX [Suspect]
     Indication: NASAL CONGESTION
     Dosage: EACH NARE QPM NASAL SPRAY
     Route: 045
     Dates: start: 20050101

REACTIONS (2)
  - ANOSMIA [None]
  - DYSGEUSIA [None]
